FAERS Safety Report 4621630-8 (Version None)
Quarter: 2005Q1

REPORT INFORMATION
  Report Type: 
  Country: None (occurrence: None)
  Receive Date: 20050328
  Receipt Date: 20050317
  Transmission Date: 20050727
  Serious: Yes (Other)
  Sender: FDA-Public Use
  Company Number: AZAUS200500064

PATIENT
  Age: 75 Year
  Sex: Male
  Weight: 82.5547 kg

DRUGS (3)
  1. VIDAZA [Suspect]
     Indication: MYELODYSPLASTIC SYNDROME
     Dosage: SEE IMAGE
     Route: 058
     Dates: start: 20040101, end: 20040101
  2. SIMVASTATIN [Concomitant]
  3. EPOGEN [Concomitant]

REACTIONS (4)
  - DYSSTASIA [None]
  - MUSCLE ATROPHY [None]
  - NERVE INJURY [None]
  - POLYNEUROPATHY [None]
